FAERS Safety Report 19946043 (Version 3)
Quarter: 2022Q2

REPORT INFORMATION
  Report Type: Spontaneous
  Country: US (occurrence: US)
  Receive Date: 20211012
  Receipt Date: 20220414
  Transmission Date: 20220721
  Serious: No
  Sender: FDA-Public Use
  Company Number: US-MYOVANT SCIENCES GMBH-2021MYSCI0900190

PATIENT
  Age: 87 Year
  Sex: Male

DRUGS (2)
  1. ORGOVYX [Suspect]
     Active Substance: RELUGOLIX
     Indication: Prostate cancer
     Dosage: 360 MILLIGRAM, ONE TIME DOSE
     Route: 048
     Dates: start: 20210617, end: 20210617
  2. ORGOVYX [Suspect]
     Active Substance: RELUGOLIX
     Dosage: 120 MILLIGRAM, QD
     Route: 048
     Dates: start: 20210618

REACTIONS (6)
  - Rash pruritic [Not Recovered/Not Resolved]
  - Bone pain [Not Recovered/Not Resolved]
  - Blood testosterone increased [Unknown]
  - Neuralgia [Unknown]
  - Prostatic specific antigen increased [Recovering/Resolving]
  - Pain in extremity [Unknown]

NARRATIVE: CASE EVENT DATE: 20210617
